FAERS Safety Report 6657030-9 (Version None)
Quarter: 2010Q1

REPORT INFORMATION
  Report Type: 
  Country: None (occurrence: None)
  Receive Date: 20100330
  Receipt Date: 20091218
  Transmission Date: 20100710
  Serious: Yes (Other)
  Sender: FDA-Public Use
  Company Number: AT-JNJFOC-20090402533

PATIENT
  Sex: Female

DRUGS (5)
  1. TAVANIC [Suspect]
     Indication: BILE DUCT STONE
     Route: 042
  2. TAVANIC [Suspect]
     Route: 042
  3. ENALAPRIL MALEATE AND HYDROCHLOROTHIAZIDE [Concomitant]
     Route: 048
  4. TRAMAL [Concomitant]
     Route: 048
  5. LAEVOLAC [Concomitant]
     Route: 048

REACTIONS (3)
  - DERMATITIS ALLERGIC [None]
  - THROMBOSIS [None]
  - VASODILATATION [None]
